FAERS Safety Report 19200057 (Version 1)
Quarter: 2021Q2

REPORT INFORMATION
  Report Type: Report from Study
  Country: US (occurrence: US)
  Receive Date: 20210429
  Receipt Date: 20210429
  Transmission Date: 20210717
  Serious: Yes (Other)
  Sender: FDA-Public Use
  Company Number: US-AMGEN-USASL2021049685

PATIENT
  Age: 66 Year
  Sex: Female

DRUGS (1)
  1. REPATHA [Suspect]
     Active Substance: EVOLOCUMAB
     Indication: BLOOD CHOLESTEROL INCREASED
     Dosage: 140 MILLIGRAM, Q2WK
     Route: 065
     Dates: start: 20210324

REACTIONS (6)
  - Induration [Recovered/Resolved]
  - Rash papular [Recovered/Resolved]
  - Rash pruritic [Recovered/Resolved]
  - Feeling abnormal [Unknown]
  - Injection site bruising [Unknown]
  - Disorientation [Unknown]

NARRATIVE: CASE EVENT DATE: 20210324
